FAERS Safety Report 4651079-3 (Version None)
Quarter: 2005Q2

REPORT INFORMATION
  Report Type: 
  Country: None (occurrence: None)
  Receive Date: 20050503
  Receipt Date: 20050429
  Transmission Date: 20051028
  Serious: Yes (Other)
  Sender: FDA-Public Use
  Company Number: PHBS2005BR06230

PATIENT
  Age: 54 Year
  Sex: Male
  Weight: 90 kg

DRUGS (2)
  1. SANDIMMUNE [Suspect]
     Route: 048
  2. MULTIPLE THERAPY (UNSPECIFIED) [Concomitant]

REACTIONS (3)
  - ARTHRITIS [None]
  - HYPERSENSITIVITY [None]
  - OSTEONECROSIS [None]
